FAERS Safety Report 8075588-2 (Version None)
Quarter: 2012Q1

REPORT INFORMATION
  Report Type: 
  Country: None (occurrence: None)
  Receive Date: 20120127
  Receipt Date: 20120119
  Transmission Date: 20120608
  Serious: Yes (Other)
  Sender: FDA-Public Use
  Company Number: US-BAYER-2011-112182

PATIENT
  Age: 30 Year
  Sex: Female
  Weight: 86.168 kg

DRUGS (3)
  1. WARFARIN SODIUM [Concomitant]
     Dosage: 5 MG, QOD
  2. WARFARIN SODIUM [Concomitant]
     Dosage: 7.5 MG, QOD
  3. MIRENA [Suspect]
     Indication: CONTRACEPTION
     Dosage: DAILY DOSE 20 ?G
     Route: 015
     Dates: start: 20090205, end: 20111118

REACTIONS (6)
  - NAUSEA [None]
  - PREGNANCY WITH CONTRACEPTIVE DEVICE [None]
  - AMENORRHOEA [None]
  - ABORTION SPONTANEOUS [None]
  - FOETAL HEART RATE ABNORMAL [None]
  - BREAST TENDERNESS [None]
